FAERS Safety Report 9448832 (Version 1)
Quarter: 2013Q3

REPORT INFORMATION
  Report Type: Spontaneous
  Country: FR (occurrence: None)
  Receive Date: 20130806
  Receipt Date: 20130806
  Transmission Date: 20140515
  Serious: Yes (Hospitalization)
  Sender: FDA-Public Use
  Company Number: FK201302867

PATIENT
  Age: 41 Year
  Sex: Female
  Weight: 75 kg

DRUGS (1)
  1. PACLITAXEL [Suspect]
     Indication: OVARIAN CANCER
     Dosage: 138 MG. CYCLICAL, INTRAVENOUS (NOT OTHERWISE SPECIFIED)
     Route: 042
     Dates: start: 20130703, end: 20130703

REACTIONS (6)
  - Dyspnoea [None]
  - Hyperhidrosis [None]
  - Hypertension [None]
  - Tachycardia [None]
  - Diarrhoea [None]
  - Vomiting [None]
